FAERS Safety Report 8433026 (Version 2)
Quarter: 2013Q3

REPORT INFORMATION
  Report Type: Report from Study
  Country: SE (occurrence: SE)
  Receive Date: 20120229
  Receipt Date: 20130709
  Transmission Date: 20140515
  Serious: Yes (Hospitalization)
  Sender: FDA-Public Use
  Company Number: SE-CELGENEUS-150-21880-11120554

PATIENT
  Age: 64 Year
  Sex: Male
  Weight: 72.3 kg

DRUGS (1)
  1. REVLIMID [Suspect]
     Indication: PANCREATIC CARCINOMA
     Dosage: 25 MILLIGRAM
     Route: 048
     Dates: start: 20111012

REACTIONS (3)
  - Gastric ulcer [Recovered/Resolved]
  - Abdominal pain [Recovered/Resolved]
  - Nausea [Recovered/Resolved]
